FAERS Safety Report 10166074 (Version 1)
Quarter: 2014Q2

REPORT INFORMATION
  Report Type: Spontaneous
  Country: FR (occurrence: FR)
  Receive Date: 20140512
  Receipt Date: 20140512
  Transmission Date: 20141212
  Serious: Yes (Hospitalization)
  Sender: FDA-Public Use
  Company Number: FR-PFIZER INC-2014123367

PATIENT
  Age: 20 Year
  Sex: Female

DRUGS (18)
  1. TAZOCILLINE [Suspect]
     Dosage: 4 G, 1X/DAY
     Route: 042
     Dates: start: 20140301, end: 20140306
  2. TAZOCILLINE [Suspect]
     Dosage: 4 G, 1X/DAY
     Route: 042
     Dates: start: 20140311, end: 20140312
  3. AMIKACIN [Suspect]
     Dosage: 700 MG, 1X/DAY
     Route: 042
     Dates: start: 20140301, end: 20140306
  4. AMIKACIN [Suspect]
     Dosage: 700 MG, 1X/DAY
     Route: 042
     Dates: start: 20140311, end: 20140316
  5. FORTUM [Suspect]
     Dosage: 2 G, 1X/DAY
     Route: 042
     Dates: start: 20140312, end: 20140320
  6. ERYTHROMYCIN [Suspect]
     Dosage: 70 MG, 4X/DAY
     Route: 042
     Dates: start: 20140228, end: 20140320
  7. AUGMENTIN [Suspect]
     Dosage: 5 G, DAILY
     Route: 042
     Dates: start: 20140227, end: 20140228
  8. CALCIPARIN [Concomitant]
     Route: 058
  9. FUROSEMIDE [Concomitant]
     Dosage: 20 MG, 4X/DAY
     Route: 042
     Dates: start: 20140311, end: 20140320
  10. INSULIN [Concomitant]
     Dosage: UNK
     Route: 058
     Dates: start: 20140307, end: 20140320
  11. MACROGOL [Concomitant]
     Dosage: 2 DF, 3X/DAY
     Route: 048
     Dates: start: 20140228, end: 20140319
  12. TRIMEBUTINE [Concomitant]
     Dosage: 50 MG, 3X/DAY
     Route: 048
     Dates: start: 20140228, end: 20140320
  13. SABRIL [Concomitant]
  14. DEPAKINE CHRONO [Concomitant]
     Dosage: 250 MG, 3X/DAY
     Route: 048
  15. KEPPRA [Concomitant]
     Dosage: 1500 MG, 2X/DAY
     Route: 048
  16. RIVOTRIL [Concomitant]
     Dosage: 0.5 MG, 1X/DAY
     Route: 048
  17. URBANYL [Concomitant]
     Dosage: 5 MG, 3X/DAY
     Route: 048
  18. SCOPODERM [Concomitant]
     Dosage: 2 MG, ALTERNATE DAY
     Route: 062
     Dates: start: 20140227, end: 20140321

REACTIONS (2)
  - Vulvovaginal mycotic infection [Recovered/Resolved]
  - Clostridium difficile colitis [Recovering/Resolving]
